FAERS Safety Report 22051616 (Version 1)
Quarter: 2023Q1

REPORT INFORMATION
  Report Type: Report from Study
  Country: LU (occurrence: LU)
  Receive Date: 20230302
  Receipt Date: 20230302
  Transmission Date: 20230418
  Serious: Yes (Other)
  Sender: FDA-Public Use
  Company Number: LU-ABBVIE-4323285

PATIENT
  Sex: Female
  Weight: 56 kg

DRUGS (19)
  1. CARBIDOPA\LEVODOPA [Suspect]
     Active Substance: CARBIDOPA\LEVODOPA
     Indication: Parkinson^s disease
     Dosage: MD: 9.5 ML, CD: 4.7 ML/H, ED: 1.0 ML DURING 16 HOURS
     Route: 050
     Dates: start: 20220624, end: 20220624
  2. CARBIDOPA\LEVODOPA [Suspect]
     Active Substance: CARBIDOPA\LEVODOPA
     Dosage: MD: 9.0 ML, CD: 4.4 ML/H, ED: 1.0 ML DURING 16 HOURS
     Route: 050
     Dates: start: 20220719, end: 20220809
  3. CARBIDOPA\LEVODOPA [Suspect]
     Active Substance: CARBIDOPA\LEVODOPA
     Dosage: MD: 9.0 ML, CD: 4.7 ML/H, ED: 1.0 ML DURING 16 HOURS
     Route: 050
     Dates: start: 20220624, end: 20220627
  4. CARBIDOPA\LEVODOPA [Suspect]
     Active Substance: CARBIDOPA\LEVODOPA
     Dosage: MD: 9.0 ML, CD: 4.2 ML/H, ED: 1.0 ML DURING 16 HOURS
     Route: 050
     Dates: start: 20220901, end: 20221019
  5. CARBIDOPA\LEVODOPA [Suspect]
     Active Substance: CARBIDOPA\LEVODOPA
     Dosage: MD: 9.0 ML, CD: 4.2 ML/H, ED: 1.5 ML DURING 16 HOURS
     Route: 050
     Dates: start: 20221019, end: 202301
  6. CARBIDOPA\LEVODOPA [Suspect]
     Active Substance: CARBIDOPA\LEVODOPA
     Dosage: MD: 9.0 ML, CD: 4.5 ML/H, ED: 1.0 ML DURING 16 HOURS
     Route: 050
     Dates: start: 20220628, end: 20220629
  7. CARBIDOPA\LEVODOPA [Suspect]
     Active Substance: CARBIDOPA\LEVODOPA
     Dosage: MD: 9.0 ML, CD: 4.2 ML/H, ED: 1.0 ML DURING 16 HOURS
     Route: 050
     Dates: start: 20220809, end: 20220901
  8. CARBIDOPA\LEVODOPA [Suspect]
     Active Substance: CARBIDOPA\LEVODOPA
     Dosage: MD: 9.0 ML, CD: 4.6 ML/H, ED: 1.0 ML DURING 16 HOURS
     Route: 050
     Dates: start: 20220627, end: 20220628
  9. CARBIDOPA\LEVODOPA [Suspect]
     Active Substance: CARBIDOPA\LEVODOPA
     Dosage: MD: 9.5 ML, CD: 4.7 ML/H, ED: 1.0 ML DURING 16 HOURS
     Route: 050
     Dates: start: 20220623, end: 20220624
  10. CARBIDOPA\LEVODOPA [Suspect]
     Active Substance: CARBIDOPA\LEVODOPA
     Dosage: MD: 9.0 ML, CD: 4.5 ML/H, ED: 1.0 ML DURING 16 HOURS
     Route: 050
     Dates: start: 20220629, end: 20220719
  11. AMANTADINE SULFATE [Concomitant]
     Active Substance: AMANTADINE SULFATE
     Indication: Product used for unknown indication
     Dosage: FORM STRENGTH: 100?FREQUENCY TEXT: AT 08.00
     Route: 065
  12. BENSERAZIDE\LEVODOPA [Concomitant]
     Active Substance: BENSERAZIDE\LEVODOPA
     Indication: Product used for unknown indication
     Dosage: FORM STRENGTH: 250?FREQUENCY TEXT: AT 07.00, 09.00, 11.00, 17.00
     Route: 065
  13. BENSERAZIDE\LEVODOPA [Concomitant]
     Active Substance: BENSERAZIDE\LEVODOPA
     Indication: Product used for unknown indication
     Dosage: FORM STRENGTH: 250?FREQUENCY TEXT: AT 13.00, 15.00?0.75 TABLET
     Route: 065
  14. COMTAN [Concomitant]
     Active Substance: ENTACAPONE
     Indication: Product used for unknown indication
     Dosage: TIME INTERVAL: 0.16666667 DAYS: FORM STRENGTH: 200
     Route: 065
  15. PRAMIPEXOLE [Concomitant]
     Active Substance: PRAMIPEXOLE
     Indication: Product used for unknown indication
     Dosage: 1.05 UNKNOWN, 0.5 TABLET?FREQUENCY TEXT: AT 18.00
     Route: 065
  16. BENSERAZIDE\LEVODOPA [Concomitant]
     Active Substance: BENSERAZIDE\LEVODOPA
     Indication: Product used for unknown indication
     Dosage: FORM STRENGTH: 125?FREQUENCY TEXT: AT 07.00 AND 15.00
     Route: 065
  17. CLOZAPINE [Concomitant]
     Active Substance: CLOZAPINE
     Indication: Product used for unknown indication
     Dosage: FORM STRENGTH: 25?FREQUENCY TEXT: AT 22.00
     Route: 065
  18. BENSERAZIDE\LEVODOPA [Concomitant]
     Active Substance: BENSERAZIDE\LEVODOPA
     Indication: Product used for unknown indication
     Dosage: FORM STRENGTH: 125?FREQUENCY TEXT: AT 22.00
     Route: 065
  19. CHOLECALCIFEROL [Concomitant]
     Active Substance: CHOLECALCIFEROL
     Indication: Product used for unknown indication
     Route: 065

REACTIONS (4)
  - Epilepsy [Not Recovered/Not Resolved]
  - Device breakage [Not Recovered/Not Resolved]
  - Bedridden [Unknown]
  - Therapeutic product effect decreased [Unknown]

NARRATIVE: CASE EVENT DATE: 20230101
